FAERS Safety Report 9539248 (Version 3)
Quarter: 2013Q4

REPORT INFORMATION
  Report Type: Spontaneous
  Country: US (occurrence: None)
  Receive Date: 20130917
  Receipt Date: 20131120
  Transmission Date: 20140711
  Serious: Yes (Hospitalization, Other)
  Sender: FDA-Public Use
  Company Number: ADR-2013-01619

PATIENT
  Age: 22 Year
  Sex: Male

DRUGS (4)
  1. LIORESAL [Suspect]
     Indication: MUSCLE SPASTICITY
  2. ALLEGRA [Concomitant]
  3. TYLENOL [Concomitant]
  4. NAPROXEN [Concomitant]

REACTIONS (11)
  - Wound secretion [None]
  - Muscle spasticity [None]
  - Condition aggravated [None]
  - Pyrexia [None]
  - Implant site infection [None]
  - Staphylococcus test positive [None]
  - Withdrawal syndrome [None]
  - Postoperative wound infection [None]
  - Excessive granulation tissue [None]
  - Wound dehiscence [None]
  - No therapeutic response [None]
